FAERS Safety Report 19628857 (Version 5)
Quarter: 2022Q1

REPORT INFORMATION
  Report Type: Report from Study
  Country: JP (occurrence: JP)
  Receive Date: 20210728
  Receipt Date: 20220224
  Transmission Date: 20220424
  Serious: Yes (Life-Threatening, Hospitalization)
  Sender: FDA-Public Use
  Company Number: JP-MERCK HEALTHCARE KGAA-9214661

PATIENT
  Age: 63 Year
  Sex: Female
  Weight: 45 kg

DRUGS (13)
  1. BAVENCIO [Suspect]
     Active Substance: AVELUMAB
     Indication: Metastatic renal cell carcinoma
     Dosage: 440 MG
     Route: 041
     Dates: start: 20201102
  2. BAVENCIO [Suspect]
     Active Substance: AVELUMAB
     Dosage: 440 MG
     Route: 041
     Dates: start: 20201214
  3. BAVENCIO [Suspect]
     Active Substance: AVELUMAB
     Route: 041
     Dates: start: 20210524, end: 20210830
  4. INLYTA [Suspect]
     Active Substance: AXITINIB
     Indication: Metastatic renal cell carcinoma
     Route: 048
     Dates: start: 20201102, end: 20210116
  5. INLYTA [Suspect]
     Active Substance: AXITINIB
     Dates: start: 202101
  6. INLYTA [Suspect]
     Active Substance: AXITINIB
     Dates: start: 20210222, end: 20210913
  7. WARFARIN [Concomitant]
     Active Substance: WARFARIN
     Indication: Product used for unknown indication
  8. AZUNOL ST [Concomitant]
     Indication: Product used for unknown indication
     Dosage: 4 PERCENT GARGLE LIQUID
  9. STIBRON [Concomitant]
     Indication: Product used for unknown indication
     Dosage: 0.05 PERCENT
  10. ACETAMINOPHEN [Concomitant]
     Active Substance: ACETAMINOPHEN
     Indication: Premedication
     Route: 048
     Dates: start: 20201102, end: 20201214
  11. ACETAMINOPHEN [Concomitant]
     Active Substance: ACETAMINOPHEN
     Route: 048
     Dates: start: 20210524, end: 20210830
  12. DIPHENHYDRAMINE [Concomitant]
     Active Substance: DIPHENHYDRAMINE
     Indication: Premedication
     Route: 048
     Dates: start: 20201102, end: 20201214
  13. DIPHENHYDRAMINE [Concomitant]
     Active Substance: DIPHENHYDRAMINE
     Route: 048
     Dates: start: 20210524, end: 20210830

REACTIONS (5)
  - Fulminant type 1 diabetes mellitus [Not Recovered/Not Resolved]
  - Urticaria [Unknown]
  - Fatigue [Recovering/Resolving]
  - Malaise [Recovering/Resolving]
  - Hypertension [Recovering/Resolving]

NARRATIVE: CASE EVENT DATE: 20210101
